FAERS Safety Report 7700038-2 (Version None)
Quarter: 2011Q3

REPORT INFORMATION
  Report Type: 
  Country: None (occurrence: None)
  Receive Date: 20110822
  Receipt Date: 20110808
  Transmission Date: 20111222
  Serious: Yes (Other)
  Sender: FDA-Public Use
  Company Number: US-ELI_LILLY_AND_COMPANY-US201107008085

PATIENT
  Sex: Female

DRUGS (2)
  1. CYMBALTA [Suspect]
     Dosage: 30 MG, QD
  2. CYMBALTA [Suspect]
     Indication: HERPES ZOSTER
     Dosage: 60 MG, QD

REACTIONS (9)
  - RENAL DISORDER [None]
  - PAIN [None]
  - PRURITUS [None]
  - ABNORMAL FAECES [None]
  - HALLUCINATION, AUDITORY [None]
  - DIVERTICULITIS [None]
  - OFF LABEL USE [None]
  - MEMORY IMPAIRMENT [None]
  - FISTULA [None]
